FAERS Safety Report 22959338 (Version 2)
Quarter: 2023Q4

REPORT INFORMATION
  Report Type: Spontaneous
  Country: US (occurrence: US)
  Receive Date: 20230920
  Receipt Date: 20231220
  Transmission Date: 20240109
  Serious: Yes (Death, Other)
  Sender: FDA-Public Use
  Company Number: US-BRISTOL-MYERS SQUIBB COMPANY-2023-133079

PATIENT
  Age: 77 Year
  Sex: Female

DRUGS (2)
  1. OPDIVO [Suspect]
     Active Substance: NIVOLUMAB
     Indication: Product used for unknown indication
     Dosage: DOSE : O: 360MG Y: 65MG;     FREQ : O: EVERY 3 WEEKS  Y: EVERY 6 WEEKS
     Route: 042
     Dates: start: 20220906
  2. YERVOY [Suspect]
     Active Substance: IPILIMUMAB
     Indication: Product used for unknown indication
     Dosage: DOSE : O: 360MG Y: 65MG;     FREQ : O: EVERY 3 WEEKS  Y: EVERY 6 WEEKS
     Route: 042
     Dates: start: 20220906

REACTIONS (1)
  - Death [Fatal]
